FAERS Safety Report 8341570-0 (Version None)
Quarter: 2012Q2

REPORT INFORMATION
  Report Type: 
  Country: None (occurrence: None)
  Receive Date: 20120507
  Receipt Date: 20120427
  Transmission Date: 20120825
  Serious: Yes (Hospitalization, Other)
  Sender: FDA-Public Use
  Company Number: AU-ASTRAZENECA-2012SE15780

PATIENT
  Sex: Male

DRUGS (1)
  1. SEROQUEL [Suspect]
     Route: 048

REACTIONS (8)
  - LIP SWELLING [None]
  - OVERDOSE [None]
  - ABDOMINAL PAIN [None]
  - PYREXIA [None]
  - EYE SWELLING [None]
  - INTENTIONAL DRUG MISUSE [None]
  - RASH MACULAR [None]
  - VOMITING [None]
